FAERS Safety Report 4856454-X (Version None)
Quarter: 2005Q4

REPORT INFORMATION
  Report Type: 
  Country: None (occurrence: None)
  Receive Date: 20051219
  Receipt Date: 20050217
  Transmission Date: 20060501
  Serious: No
  Sender: FDA-Public Use
  Company Number: US-GLAXOSMITHKLINE-A0546289A

PATIENT
  Sex: Female
  Weight: 77 kg

DRUGS (3)
  1. NICODERM CQ [Suspect]
  2. NEBULIZER [Concomitant]
  3. OXYGEN [Concomitant]

REACTIONS (1)
  - NICOTINE DEPENDENCE [None]
